FAERS Safety Report 14750098 (Version 9)
Quarter: 2021Q2

REPORT INFORMATION
  Report Type: Other
  Country: CA (occurrence: CA)
  Receive Date: 20180412
  Receipt Date: 20210427
  Transmission Date: 20210716
  Serious: Yes (Hospitalization, Other)
  Sender: FDA-Public Use
  Company Number: CA-ROCHE-2104193

PATIENT
  Age: 66 Year
  Sex: Female

DRUGS (19)
  1. XOLAIR [Suspect]
     Active Substance: OMALIZUMAB
     Route: 058
     Dates: start: 20180801
  2. SINGULAIR [Concomitant]
     Active Substance: MONTELUKAST SODIUM
     Indication: PRODUCT USED FOR UNKNOWN INDICATION
     Dosage: UNK
     Route: 065
  3. XOLAIR [Suspect]
     Active Substance: OMALIZUMAB
     Indication: ASTHMA
     Route: 058
     Dates: start: 20171123
  4. XOLAIR [Suspect]
     Active Substance: OMALIZUMAB
     Route: 058
     Dates: start: 20190411
  5. XOLAIR [Suspect]
     Active Substance: OMALIZUMAB
     Route: 058
     Dates: start: 20190425
  6. SYMBICORT [Concomitant]
     Active Substance: BUDESONIDE\FORMOTEROL FUMARATE DIHYDRATE
     Indication: PRODUCT USED FOR UNKNOWN INDICATION
     Route: 055
  7. XOLAIR [Suspect]
     Active Substance: OMALIZUMAB
     Dosage: UNK
     Route: 058
     Dates: start: 20180315
  8. XOLAIR [Suspect]
     Active Substance: OMALIZUMAB
     Route: 058
     Dates: start: 20190328
  9. XOLAIR [Suspect]
     Active Substance: OMALIZUMAB
     Route: 058
     Dates: start: 20190314
  10. XOLAIR [Suspect]
     Active Substance: OMALIZUMAB
     Route: 058
     Dates: start: 20200515
  11. XOLAIR [Suspect]
     Active Substance: OMALIZUMAB
     Route: 058
  12. XOLAIR [Suspect]
     Active Substance: OMALIZUMAB
     Route: 058
     Dates: start: 20201026
  13. XOLAIR [Suspect]
     Active Substance: OMALIZUMAB
     Route: 058
     Dates: start: 20201204
  14. VENTOLIN [Concomitant]
     Active Substance: ALBUTEROL SULFATE
     Indication: PRODUCT USED FOR UNKNOWN INDICATION
     Route: 055
  15. XOLAIR [Suspect]
     Active Substance: OMALIZUMAB
     Route: 058
     Dates: start: 20180511
  16. XOLAIR [Suspect]
     Active Substance: OMALIZUMAB
     Route: 058
     Dates: start: 20200417
  17. XOLAIR [Suspect]
     Active Substance: OMALIZUMAB
     Route: 058
     Dates: start: 20180611
  18. XOLAIR [Suspect]
     Active Substance: OMALIZUMAB
     Route: 058
     Dates: start: 20171205
  19. HYDRALAZINE [Suspect]
     Active Substance: HYDRALAZINE HYDROCHLORIDE
     Indication: HYPERTENSIVE CRISIS
     Route: 065

REACTIONS (27)
  - Urinary incontinence [Recovering/Resolving]
  - Malaise [Not Recovered/Not Resolved]
  - Lipoma [Recovering/Resolving]
  - Dizziness [Recovered/Resolved]
  - Contusion [Unknown]
  - Loss of consciousness [Recovered/Resolved]
  - Paranasal sinus discomfort [Recovered/Resolved]
  - Asthma [Recovered/Resolved]
  - Mobility decreased [Recovering/Resolving]
  - Eye haemorrhage [Recovering/Resolving]
  - Dyspnoea [Unknown]
  - Bell^s palsy [Unknown]
  - Procedural pain [Unknown]
  - Pain [Unknown]
  - Rhinorrhoea [Recovered/Resolved]
  - Cough [Unknown]
  - Injury [Unknown]
  - Back pain [Recovering/Resolving]
  - Oropharyngeal pain [Unknown]
  - Fatigue [Unknown]
  - Injection site bruising [Unknown]
  - Anxiety [Unknown]
  - Inappropriate schedule of product administration [Unknown]
  - Hypertensive crisis [Recovered/Resolved]
  - Asthma [Unknown]
  - Headache [Recovered/Resolved]
  - Limb discomfort [Unknown]

NARRATIVE: CASE EVENT DATE: 20171205
